FAERS Safety Report 24311177 (Version 1)
Quarter: 2024Q3

REPORT INFORMATION
  Report Type: Spontaneous
  Country: ES (occurrence: ES)
  Receive Date: 20240912
  Receipt Date: 20240912
  Transmission Date: 20241017
  Serious: Yes (Other)
  Sender: ADVANZ PHARMA
  Company Number: ES-ADVANZ PHARMA-202409007469

PATIENT

DRUGS (1)
  1. SALAGEN [Suspect]
     Active Substance: PILOCARPINE HYDROCHLORIDE
     Indication: Sjogren^s syndrome
     Dosage: 1 DOSAGE FORM, BID (1 TABLET EVERY 12 HOURS FOR 180DAYS)
     Route: 048
     Dates: start: 20240315, end: 20240419

REACTIONS (2)
  - Extrasystoles [Recovered/Resolved]
  - Atrioventricular block [Unknown]

NARRATIVE: CASE EVENT DATE: 20240419
